FAERS Safety Report 7314421-0 (Version None)
Quarter: 2011Q1

REPORT INFORMATION
  Report Type: 
  Country: None (occurrence: None)
  Receive Date: 20110225
  Receipt Date: 20100830
  Transmission Date: 20110831
  Serious: No
  Sender: FDA-Public Use
  Company Number: US-MYLANLABS-2010S1014932

PATIENT
  Age: 23 Year
  Sex: Male
  Weight: 117.94 kg

DRUGS (6)
  1. ACCUTANE [Suspect]
  2. AMNESTEEM [Suspect]
     Indication: SCAR
     Route: 048
     Dates: start: 20100626, end: 20100701
  3. AMNESTEEM [Suspect]
     Route: 048
     Dates: start: 20100701, end: 20100811
  4. AMNESTEEM [Suspect]
     Indication: ACNE
     Route: 048
     Dates: start: 20100626, end: 20100701
  5. ACCUTANE [Suspect]
  6. AMNESTEEM [Suspect]
     Route: 048
     Dates: start: 20100701, end: 20100811

REACTIONS (2)
  - ACNE [None]
  - MOOD ALTERED [None]
